FAERS Safety Report 8374774-1 (Version None)
Quarter: 2012Q2

REPORT INFORMATION
  Report Type: 
  Country: None (occurrence: None)
  Receive Date: 20120521
  Receipt Date: 20120507
  Transmission Date: 20120825
  Serious: No
  Sender: FDA-Public Use
  Company Number: US-ASTRAZENECA-2012SE29555

PATIENT
  Age: 58 Year
  Sex: Female
  Weight: 71.7 kg

DRUGS (2)
  1. FASLODEX [Suspect]
     Indication: BREAST CANCER METASTATIC
     Dosage: INJECTION MONTHLY
     Route: 030
     Dates: start: 20110101
  2. RELPAX [Concomitant]
     Indication: MIGRAINE

REACTIONS (2)
  - INJECTION SITE PAIN [None]
  - MIGRAINE [None]
